FAERS Safety Report 5805240-2 (Version None)
Quarter: 2008Q3

REPORT INFORMATION
  Report Type: 
  Country: None (occurrence: None)
  Receive Date: 20080703
  Receipt Date: 20080626
  Transmission Date: 20090109
  Serious: Yes (Hospitalization)
  Sender: FDA-Public Use
  Company Number: A0622122A

PATIENT
  Age: 60 Year
  Sex: Male

DRUGS (10)
  1. ACYCLOVIR [Suspect]
     Dosage: 810 MG / THREE TIMES PER DAY / INTRA
     Dates: start: 20060930
  2. ATRIPLA [Concomitant]
  3. CO-TRIMOXAZOLE [Concomitant]
  4. VANCOMYCIN HCL [Concomitant]
  5. SIMVASTATIN [Concomitant]
  6. PHENYTOIN [Concomitant]
  7. EFAVIRENZ [Concomitant]
  8. EMTRICITABINE [Concomitant]
  9. TENOFOVIR [Concomitant]
  10. PRAVASTATIN SODIUM [Concomitant]

REACTIONS (9)
  - ALBUMIN URINE PRESENT [None]
  - BLOOD CREATININE INCREASED [None]
  - BLOOD URINE PRESENT [None]
  - CHROMATURIA [None]
  - CRYSTAL URINE PRESENT [None]
  - CRYSTALLURIA [None]
  - HYPOVOLAEMIA [None]
  - URINE ABNORMALITY [None]
  - URINE KETONE BODY PRESENT [None]
